FAERS Safety Report 5232755-0 (Version None)
Quarter: 2007Q1

REPORT INFORMATION
  Report Type: 
  Country: None (occurrence: None)
  Receive Date: 20070206
  Receipt Date: 20070206
  Transmission Date: 20070707
  Serious: Yes (Hospitalization)
  Sender: FDA-Public Use
  Company Number: None

PATIENT
  Age: 66 Year
  Sex: Female
  Weight: 32.4775 kg

DRUGS (1)
  1. NIMODIPINE    60 MG    BAYER [Suspect]
     Indication: HAEMORRHAGE INTRACRANIAL
     Dosage: 60 MG    EVERY 4 HOURS  PO
     Route: 048
     Dates: start: 20070201, end: 20070201

REACTIONS (2)
  - BLOOD PRESSURE DECREASED [None]
  - NODAL ARRHYTHMIA [None]
